FAERS Safety Report 7946189-9 (Version None)
Quarter: 2011Q4

REPORT INFORMATION
  Report Type: 
  Country: None (occurrence: None)
  Receive Date: 20111129
  Receipt Date: 20111118
  Transmission Date: 20120403
  Serious: Yes (Hospitalization, Other)
  Sender: FDA-Public Use
  Company Number: US-AMGEN-USASP2011061392

PATIENT
  Sex: Male

DRUGS (1)
  1. ENBREL [Suspect]
     Dosage: 50 MG, QWK
     Route: 064
     Dates: start: 20031101

REACTIONS (4)
  - HYPERBILIRUBINAEMIA NEONATAL [None]
  - CAESAREAN SECTION [None]
  - COOMBS TEST POSITIVE [None]
  - MATERNAL DRUGS AFFECTING FOETUS [None]
